FAERS Safety Report 25145917 (Version 1)
Quarter: 2025Q2

REPORT INFORMATION
  Report Type: Spontaneous
  Country: MX (occurrence: MX)
  Receive Date: 20250401
  Receipt Date: 20250401
  Transmission Date: 20250717
  Serious: Yes (Other)
  Sender: OXFORD PHARMACEUTICALS
  Company Number: MX-Oxford Pharmaceuticals, LLC-2174025

PATIENT
  Age: 3 Decade
  Sex: Male

DRUGS (3)
  1. LEVETIRACETAM [Suspect]
     Active Substance: LEVETIRACETAM
     Indication: Seizure
  2. GABAPENTIN [Suspect]
     Active Substance: GABAPENTIN
  3. CARBAMAZEPINE [Suspect]
     Active Substance: CARBAMAZEPINE

REACTIONS (3)
  - Therapy partial responder [Unknown]
  - Prescribed overdose [Unknown]
  - Off label use [Unknown]
